FAERS Safety Report 25409423 (Version 1)
Quarter: 2025Q2

REPORT INFORMATION
  Report Type: Spontaneous
  Country: US (occurrence: US)
  Receive Date: 20250607
  Receipt Date: 20250607
  Transmission Date: 20250716
  Serious: No
  Sender: RIGEL PHARMACEUTICALS
  Company Number: US-RIGEL Pharmaceuticals INC-20250100048

PATIENT
  Age: 76 Year
  Sex: Female

DRUGS (4)
  1. TAVALISSE [Suspect]
     Active Substance: FOSTAMATINIB
     Indication: Immune thrombocytopenia
     Dosage: 100 MG, BID
     Route: 048
     Dates: start: 20241211, end: 20250109
  2. TAVALISSE [Suspect]
     Active Substance: FOSTAMATINIB
     Dosage: 300 MG, QD
     Route: 048
     Dates: start: 20250109
  3. TAVALISSE [Suspect]
     Active Substance: FOSTAMATINIB
     Dosage: 150 MILLIGRAM, BID
     Route: 048
     Dates: start: 202501
  4. TAVALISSE [Suspect]
     Active Substance: FOSTAMATINIB
     Dosage: 150 MG,BID
     Route: 048
     Dates: end: 202505

REACTIONS (3)
  - Platelet count decreased [Recovered/Resolved]
  - Chronic obstructive pulmonary disease [Recovered/Resolved]
  - Drug ineffective [Unknown]

NARRATIVE: CASE EVENT DATE: 20241220
